FAERS Safety Report 9416539 (Version 3)
Quarter: 2013Q4

REPORT INFORMATION
  Report Type: Spontaneous
  Country: DE (occurrence: DE)
  Receive Date: 20130724
  Receipt Date: 20131112
  Transmission Date: 20140711
  Serious: Yes (Other)
  Sender: FDA-Public Use
  Company Number: DE-JNJFOC-20130709632

PATIENT
  Age: 69 Year
  Sex: Male
  Weight: 83 kg

DRUGS (7)
  1. XARELTO [Suspect]
     Indication: ATRIAL FIBRILLATION
     Route: 048
  2. XARELTO [Suspect]
     Indication: CEREBROVASCULAR ACCIDENT PROPHYLAXIS
     Route: 048
  3. NOVODIGAL [Suspect]
     Indication: PRODUCT USED FOR UNKNOWN INDICATION
     Dosage: 1 UNKNOWN DOSE
     Route: 065
  4. SPIRIVA [Concomitant]
     Dosage: 2 UNKNOWN
     Route: 065
  5. FOSTER [Concomitant]
     Dosage: 1 UNKNOWN DOSE
     Route: 065
  6. EZETROL [Concomitant]
     Route: 065
  7. PANTOPRAZOLE [Concomitant]
     Route: 065

REACTIONS (2)
  - Mastitis [Recovering/Resolving]
  - Gynaecomastia [Recovering/Resolving]
